FAERS Safety Report 5057029-2 (Version None)
Quarter: 2006Q2

REPORT INFORMATION
  Report Type: 
  Country: None (occurrence: None)
  Receive Date: 20060622
  Receipt Date: 20050812
  Transmission Date: 20061013
  Serious: Yes (Other)
  Sender: FDA-Public Use
  Company Number: US-JNJFOC-20050803938

PATIENT
  Age: 77 Year
  Sex: Female
  Weight: 36.7414 kg

DRUGS (8)
  1. DURAGESIC-100 [Suspect]
     Indication: PAIN
     Dosage: 12.5 UG/HR, 1 IN 72 HOUR, TRANSDERMAL
     Route: 062
     Dates: start: 20050301
  2. VERAPAMIL (VERAPAMIL) TABLETS [Concomitant]
  3. LOPRESSOR [Concomitant]
  4. ALDACTONE [Suspect]
  5. COMTAN (ENTACAPONE) TABLETS [Concomitant]
  6. DIGOXIN (DIGOXIN) TABLETS [Concomitant]
  7. REMERON [Concomitant]
  8. SINEMET (SINEMET) TABLETS [Concomitant]

REACTIONS (1)
  - WEIGHT DECREASED [None]
